FAERS Safety Report 16367586 (Version 1)
Quarter: 2019Q2

REPORT INFORMATION
  Report Type: Spontaneous
  Country: US (occurrence: US)
  Receive Date: 20190529
  Receipt Date: 20190529
  Transmission Date: 20190711
  Serious: No
  Sender: FDA-Public Use
  Company Number: US-PFIZER INC-2019222798

PATIENT
  Age: 68 Year
  Sex: Female

DRUGS (1)
  1. METHOTREXATE SODIUM. [Suspect]
     Active Substance: METHOTREXATE SODIUM
     Dosage: 0.7 ML, WEEKLY (50 MG /2 ML INJECTION SOLUTION; 0.7 ML)
     Route: 058

REACTIONS (3)
  - Arthralgia [Unknown]
  - Joint swelling [Unknown]
  - Tenderness [Unknown]
